FAERS Safety Report 20637701 (Version 3)
Quarter: 2022Q2

REPORT INFORMATION
  Report Type: Spontaneous
  Country: US (occurrence: US)
  Receive Date: 20220325
  Receipt Date: 20220411
  Transmission Date: 20220721
  Serious: No
  Sender: FDA-Public Use
  Company Number: US-PFIZER INC-202200455726

PATIENT
  Age: 56 Year
  Sex: Male
  Weight: 86.18 kg

DRUGS (1)
  1. PAXLOVID [Suspect]
     Active Substance: NIRMATRELVIR\RITONAVIR
     Indication: COVID-19 treatment
     Dosage: UNK
     Dates: start: 20220321

REACTIONS (9)
  - Dysgeusia [Recovering/Resolving]
  - Insomnia [Unknown]
  - Anxiety [Recovered/Resolved]
  - Feeling abnormal [Recovered/Resolved]
  - Dissociation [Recovered/Resolved]
  - Hypoaesthesia [Recovered/Resolved]
  - Product label confusion [Unknown]
  - Fatigue [Unknown]
  - Tinnitus [Unknown]

NARRATIVE: CASE EVENT DATE: 20220321
